FAERS Safety Report 7397558-X (Version None)
Quarter: 2011Q2

REPORT INFORMATION
  Report Type: 
  Country: None (occurrence: None)
  Receive Date: 20110406
  Receipt Date: 20110401
  Transmission Date: 20111010
  Serious: Yes (Death)
  Sender: FDA-Public Use
  Company Number: US-PFIZER INC-2011057957

PATIENT
  Age: 53 Year
  Sex: Female

DRUGS (1)
  1. SUTENT [Suspect]
     Indication: OVARIAN CANCER METASTATIC
     Dosage: 50 MG, 1X/DAY FOR 4 WEEKS FOLLOWED BY 2 WEEKS OFF
     Route: 048
     Dates: start: 20110204, end: 20110216

REACTIONS (1)
  - DEATH [None]
